FAERS Safety Report 13839842 (Version 1)
Quarter: 2017Q3

REPORT INFORMATION
  Report Type: Spontaneous
  Country: US (occurrence: US)
  Receive Date: 20170805
  Receipt Date: 20170805
  Transmission Date: 20171127
  Serious: No
  Sender: FDA-Public Use
  Company Number: None

PATIENT
  Age: 43 Year
  Sex: Male

DRUGS (6)
  1. PROPOFOL. [Suspect]
     Active Substance: PROPOFOL
     Indication: SEDATION
     Route: 042
     Dates: start: 20170107, end: 20170110
  2. LORAZEPAM. [Concomitant]
     Active Substance: LORAZEPAM
  3. FENTANYL. [Concomitant]
     Active Substance: FENTANYL
  4. QUETIAPINE. [Concomitant]
     Active Substance: QUETIAPINE
  5. FAMOTIDINE. [Concomitant]
     Active Substance: FAMOTIDINE
  6. HEPARIN [Concomitant]
     Active Substance: HEPARIN SODIUM

REACTIONS (2)
  - Pancreatitis [None]
  - Blood triglycerides increased [None]

NARRATIVE: CASE EVENT DATE: 20170110
